FAERS Safety Report 4339707-3 (Version None)
Quarter: 2004Q1

REPORT INFORMATION
  Report Type: 
  Country: None (occurrence: None)
  Receive Date: 20040329
  Receipt Date: 20040129
  Transmission Date: 20041129
  Serious: No
  Sender: FDA-Public Use
  Company Number: 04P-163-0249013-00

PATIENT
  Age: 42 Year
  Sex: Female

DRUGS (8)
  1. HUMIRA [Suspect]
     Indication: RHEUMATOID ARTHRITIS
     Dosage: 40 MG, 1 IN 1 WK, PER ORAL
     Route: 048
     Dates: start: 20030401
  2. METHOTREXATE [Concomitant]
  3. PREDNISONE TAB [Concomitant]
  4. NABUMETONE [Concomitant]
  5. PANTOPRAZOLE [Concomitant]
  6. RISEDRONATE SODIUM [Concomitant]
  7. VICODIN [Concomitant]
  8. METAXALONE [Concomitant]

REACTIONS (1)
  - INJECTION SITE HAEMORRHAGE [None]
